FAERS Safety Report 13097113 (Version 4)
Quarter: 2017Q1

REPORT INFORMATION
  Report Type: Spontaneous
  Country: US (occurrence: US)
  Receive Date: 20170109
  Receipt Date: 20170224
  Transmission Date: 20170428
  Serious: No
  Sender: FDA-Public Use
  Company Number: US-PFIZER INC-2017005920

PATIENT
  Age: 67 Year
  Sex: Male
  Weight: 88.45 kg

DRUGS (2)
  1. KERYDIN [Suspect]
     Active Substance: TAVABOROLE
     Indication: FUNGAL INFECTION
  2. KERYDIN [Suspect]
     Active Substance: TAVABOROLE
     Indication: ONYCHOMYCOSIS
     Dosage: 2 GTT, 1X/DAY (1 DROP TO TOP AND UNDERSIDE OF EACH TOENAIL)
     Route: 061
     Dates: start: 201601

REACTIONS (3)
  - Osteoarthritis [Unknown]
  - Paraesthesia [Not Recovered/Not Resolved]
  - Condition aggravated [Unknown]

NARRATIVE: CASE EVENT DATE: 201606
